FAERS Safety Report 15988989 (Version 2)
Quarter: 2019Q1

REPORT INFORMATION
  Report Type: Report from Study
  Country: US (occurrence: US)
  Receive Date: 20190221
  Receipt Date: 20190301
  Transmission Date: 20190418
  Serious: Yes (Hospitalization)
  Sender: FDA-Public Use
  Company Number: US-GILEAD-2019-0391760

PATIENT
  Age: 7 Year
  Sex: Female
  Weight: 21 kg

DRUGS (7)
  1. UPTRAVI [Concomitant]
     Active Substance: SELEXIPAG
  2. MULTIVITAMINS [VITAMINS NOS] [Concomitant]
     Active Substance: VITAMINS
  3. ADCIRCA [Concomitant]
     Active Substance: TADALAFIL
  4. SELEXIPAG [Concomitant]
     Active Substance: SELEXIPAG
  5. TADALAFIL. [Concomitant]
     Active Substance: TADALAFIL
  6. AMBRISENTAN [Suspect]
     Active Substance: AMBRISENTAN
     Indication: PULMONARY HYPERTENSION
     Dosage: 5 MG, QD
     Route: 048
     Dates: start: 20141028
  7. OXYGEN. [Concomitant]
     Active Substance: OXYGEN

REACTIONS (2)
  - Respiratory syncytial virus infection [Recovered/Resolved]
  - Off label use [Not Recovered/Not Resolved]

NARRATIVE: CASE EVENT DATE: 20141028
